FAERS Safety Report 9804519 (Version 2)
Quarter: 2014Q2

REPORT INFORMATION
  Report Type: Report from Study
  Country: JP (occurrence: JP)
  Receive Date: 20140108
  Receipt Date: 20140519
  Transmission Date: 20141212
  Serious: Yes (Other)
  Sender: FDA-Public Use
  Company Number: JP-ABBVIE-14P-087-1187261-00

PATIENT
  Age: 86 Year
  Sex: Male

DRUGS (16)
  1. LIPACREON GRANULES 300MG SACHET [Suspect]
     Indication: PANCREATIC INSUFFICIENCY
     Dosage: 300MG SACHET
     Route: 048
     Dates: start: 20121116
  2. SODIUM RABEPRAZOLE [Concomitant]
     Indication: PROPHYLAXIS AGAINST GASTROINTESTINAL ULCER
     Route: 048
  3. SODIUM RABEPRAZOLE [Concomitant]
     Indication: ANTICOAGULANT THERAPY
  4. TEPRENONE [Concomitant]
     Indication: GASTRITIS PROPHYLAXIS
     Route: 048
  5. NIFEDIPINE [Concomitant]
     Indication: HYPERTENSION
     Route: 048
  6. ASPIRIN [Concomitant]
     Indication: THROMBOSIS PROPHYLAXIS
     Route: 048
  7. CARVEDILOL [Concomitant]
     Indication: CARDIAC FAILURE
     Route: 048
  8. CARVEDILOL [Concomitant]
     Indication: CARDIOVASCULAR EVENT PROPHYLAXIS
  9. ROSUVASTATIN CALCIUM [Concomitant]
     Indication: ANGINA PECTORIS
     Route: 048
  10. ROSUVASTATIN CALCIUM [Concomitant]
     Indication: CARDIOVASCULAR EVENT PROPHYLAXIS
  11. IFENPRODIL TARTRATE [Concomitant]
     Indication: CEREBRAL INFARCTION
     Route: 048
  12. IFENPRODIL TARTRATE [Concomitant]
     Indication: PROPHYLAXIS
  13. TORASEMIDE [Concomitant]
     Indication: CARDIAC FAILURE
     Route: 048
  14. TORASEMIDE [Concomitant]
     Indication: CARDIOVASCULAR EVENT PROPHYLAXIS
  15. EPLERENONE [Concomitant]
     Indication: PRODUCT USED FOR UNKNOWN INDICATION
     Route: 048
  16. WARFARIN POTASSIUM [Concomitant]
     Indication: PRODUCT USED FOR UNKNOWN INDICATION
     Route: 048

REACTIONS (1)
  - Cardiac failure congestive [Recovering/Resolving]
